FAERS Safety Report 7284355-9 (Version None)
Quarter: 2011Q1

REPORT INFORMATION
  Report Type: 
  Country: None (occurrence: None)
  Receive Date: 20110126
  Receipt Date: 20110112
  Transmission Date: 20110831
  Serious: Yes (Other)
  Sender: FDA-Public Use
  Company Number: 201012001

PATIENT
  Age: 76 Year
  Sex: Female

DRUGS (4)
  1. XIAFLEX [Suspect]
     Indication: DUPUYTREN'S CONTRACTURE
     Dosage: 0.58 MG, 1 IN 1 D, INTRALESIONAL
     Route: 026
     Dates: start: 20101026, end: 20101026
  2. PREDNISONE TAB [Suspect]
     Indication: URTICARIA
     Dosage: 40 MG, 1 IN 1 D
     Dates: start: 20101104, end: 20101101
  3. ASA (ACETYLSLICYLIC ACID) [Suspect]
     Indication: ATRIAL FIBRILLATION
     Dosage: 1 IN 1 D
  4. PRILOSEC (OMEPRAZOLE) [Concomitant]

REACTIONS (10)
  - DYSPNOEA [None]
  - FATIGUE [None]
  - NAUSEA [None]
  - DRUG HYPERSENSITIVITY [None]
  - VERTIGO [None]
  - ASTHENIA [None]
  - ATRIAL FIBRILLATION [None]
  - CHEST PAIN [None]
  - HEART RATE IRREGULAR [None]
  - PALPITATIONS [None]
